FAERS Safety Report 5820196-4 (Version None)
Quarter: 2008Q3

REPORT INFORMATION
  Report Type: 
  Country: None (occurrence: None)
  Receive Date: 20080724
  Receipt Date: 20080717
  Transmission Date: 20090109
  Serious: Yes (Hospitalization, Other)
  Sender: FDA-Public Use
  Company Number: PHEH2008US06419

PATIENT
  Age: 54 Year
  Sex: Female
  Weight: 85.714 kg

DRUGS (4)
  1. METOPROLOL TARTRATE [Suspect]
     Indication: HYPERTENSION
     Dosage: 50 MG, BID
     Dates: start: 19960101
  2. VASOTEC [Concomitant]
     Dosage: UNK, BID
  3. SPIRONOLACTONE [Concomitant]
     Dosage: UNK, BID
  4. SIMVASTATIN [Concomitant]

REACTIONS (3)
  - CHRONIC OBSTRUCTIVE PULMONARY DISEASE [None]
  - HEART RATE INCREASED [None]
  - HYPOTENSION [None]
